FAERS Safety Report 22147734 (Version 2)
Quarter: 2023Q1

REPORT INFORMATION
  Report Type: Report from Study
  Country: US (occurrence: US)
  Receive Date: 20230328
  Receipt Date: 20230331
  Transmission Date: 20230417
  Serious: No
  Sender: FDA-Public Use
  Company Number: US-002147023-NVSC2023US065525

PATIENT
  Sex: Female

DRUGS (1)
  1. KESIMPTA [Suspect]
     Active Substance: OFATUMUMAB
     Indication: Product used for unknown indication
     Dosage: 20 MG, QMO
     Route: 058

REACTIONS (5)
  - Fatigue [Unknown]
  - Abdominal discomfort [Recovered/Resolved]
  - Headache [Recovering/Resolving]
  - Restlessness [Recovering/Resolving]
  - Dyspnoea [Unknown]
